FAERS Safety Report 6873061-8 (Version None)
Quarter: 2010Q3

REPORT INFORMATION
  Report Type: 
  Country: None (occurrence: None)
  Receive Date: 20100723
  Receipt Date: 20081112
  Transmission Date: 20110219
  Serious: No
  Sender: FDA-Public Use
  Company Number: US-PFIZER INC-2008097355

PATIENT
  Sex: Male
  Weight: 172.37 kg

DRUGS (3)
  1. CHANTIX [Suspect]
     Indication: SMOKING CESSATION THERAPY
     Dates: start: 20080901, end: 20081001
  2. FEXOFENADINE [Concomitant]
  3. NASAL PREPARATIONS [Concomitant]

REACTIONS (7)
  - ANGER [None]
  - EYE PAIN [None]
  - HEADACHE [None]
  - IRRITABILITY [None]
  - MOOD SWINGS [None]
  - POLLAKIURIA [None]
  - VISUAL IMPAIRMENT [None]
